FAERS Safety Report 10414053 (Version 1)
Quarter: 2014Q3

REPORT INFORMATION
  Report Type: Spontaneous
  Country: IT (occurrence: IT)
  Receive Date: 20140827
  Receipt Date: 20140827
  Transmission Date: 20150326
  Serious: Yes (Death)
  Sender: FDA-Public Use
  Company Number: IT-TAKEDA-2014TUS007787

PATIENT
  Sex: Female

DRUGS (3)
  1. COLCHICINE. [Suspect]
     Active Substance: COLCHICINE
     Indication: CHONDROCALCINOSIS
     Dosage: 1 MG, QD
     Route: 065
  2. IMATINIB MESYLATE [Suspect]
     Active Substance: IMATINIB MESYLATE
     Indication: INTERSTITIAL LUNG DISEASE
  3. IMATINIB MESYLATE [Suspect]
     Active Substance: IMATINIB MESYLATE
     Indication: SYSTEMIC SCLEROSIS
     Dosage: 200 MG (TWO TABLETS), QD
     Route: 048

REACTIONS (5)
  - Off label use [Unknown]
  - Asthenia [Unknown]
  - Oedema peripheral [Unknown]
  - Diarrhoea [Unknown]
  - Sudden death [Fatal]
